FAERS Safety Report 4523959-0 (Version None)
Quarter: 2005Q1

REPORT INFORMATION
  Report Type: 
  Country: None (occurrence: None)
  Receive Date: 20041209
  Receipt Date: 20041124
  Transmission Date: 20050727
  Serious: Yes (Other)
  Sender: FDA-Public Use
  Company Number: US-2004-035778

PATIENT
  Age: 60 Year
  Sex: Female

DRUGS (3)
  1. MAGNEVIST [Suspect]
  2. FENTANYL [Suspect]
     Indication: NUCLEAR MAGNETIC RESONANCE IMAGING
     Route: 042
  3. VERSED [Suspect]
     Indication: SEDATION
     Dosage: 10MG
     Dates: start: 20041124, end: 20041124

REACTIONS (4)
  - ANAESTHETIC COMPLICATION [None]
  - CONTRAST MEDIA REACTION [None]
  - RESPIRATORY ARREST [None]
  - SEDATION [None]
